FAERS Safety Report 5664502-2 (Version None)
Quarter: 2008Q1

REPORT INFORMATION
  Report Type: 
  Country: None (occurrence: None)
  Receive Date: 20080312
  Receipt Date: 20080305
  Transmission Date: 20080703
  Serious: Yes (Life-Threatening)
  Sender: FDA-Public Use
  Company Number: TCI2007A06571

PATIENT
  Age: 76 Year
  Sex: Male
  Weight: 80 kg

DRUGS (3)
  1. LEUPROLIDE ACETATE [Suspect]
     Indication: PROSTATE CANCER STAGE IV
     Dosage: 11.25 MG (11.25 MG,1 IN 12 WK)
     Route: 058
     Dates: start: 20060615
  2. FLUTAMIDE [Concomitant]
  3. CASODEX [Concomitant]

REACTIONS (2)
  - LYMPHADENOPATHY [None]
  - TONGUE NEOPLASM MALIGNANT STAGE UNSPECIFIED [None]
